FAERS Safety Report 6831208-3 (Version None)
Quarter: 2010Q3

REPORT INFORMATION
  Report Type: 
  Country: None (occurrence: None)
  Receive Date: 20100712
  Receipt Date: 20100705
  Transmission Date: 20110219
  Serious: Yes (Other)
  Sender: FDA-Public Use
  Company Number: JP-JNJFOC-20100701227

PATIENT
  Sex: Male
  Weight: 60.96 kg

DRUGS (8)
  1. ITRIZOLE [Suspect]
     Indication: PRODUCT USED FOR UNKNOWN INDICATION
     Route: 041
  2. ITRIZOLE [Suspect]
     Route: 041
  3. ASPIRIN [Concomitant]
     Indication: CEREBRAL INFARCTION
     Route: 048
  4. MICARDIS [Concomitant]
     Indication: HYPERTENSION
     Route: 048
  5. MYONAL [Concomitant]
     Indication: CEREBRAL INFARCTION
     Route: 048
  6. ATELEC [Concomitant]
     Indication: HYPERTENSION
     Route: 048
  7. METHYCOBAL [Concomitant]
     Indication: CEREBRAL INFARCTION
     Dosage: 1500 MICROGRAM
     Route: 048
  8. FRANDOL [Concomitant]
     Indication: HYPERTENSION
     Route: 062

REACTIONS (3)
  - BLOOD PRESSURE FLUCTUATION [None]
  - BODY TEMPERATURE DECREASED [None]
  - PHLEBITIS [None]
